FAERS Safety Report 8876256 (Version 2)
Quarter: 2013Q2

REPORT INFORMATION
  Report Type: Spontaneous
  Country: US (occurrence: US)
  Receive Date: 20121030
  Receipt Date: 20130423
  Transmission Date: 20140414
  Serious: Yes (Death, Other)
  Sender: FDA-Public Use
  Company Number: US-009507513-1210USA011154

PATIENT
  Age: 82 Year
  Sex: Female
  Weight: 49.89 kg

DRUGS (5)
  1. SINEMET [Suspect]
     Indication: PARKINSON^S DISEASE
     Dosage: VARIED 5 TABLET/DAY AND 1/2 TABLET TWICE
     Route: 048
     Dates: start: 2010, end: 20130328
  2. SINEMET [Suspect]
     Indication: MUSCULOSKELETAL STIFFNESS
  3. SINEMET [Suspect]
     Indication: PROGRESSIVE SUPRANUCLEAR PALSY
  4. RYTHMOL [Suspect]
     Indication: ATRIAL FIBRILLATION
     Dosage: UNK
     Dates: start: 20121017
  5. RYTHMOL [Suspect]
     Dosage: 225 MG, TID

REACTIONS (8)
  - Coma [Fatal]
  - Speech disorder [Unknown]
  - Wrong technique in drug usage process [Unknown]
  - Drug interaction [Unknown]
  - Therapy change [Unknown]
  - Tremor [Unknown]
  - Dysphagia [Unknown]
  - Somnolence [Unknown]
